FAERS Safety Report 7750916-3 (Version None)
Quarter: 2011Q3

REPORT INFORMATION
  Report Type: 
  Country: None (occurrence: None)
  Receive Date: 20110914
  Receipt Date: 20110901
  Transmission Date: 20111222
  Serious: Yes (Hospitalization, Other)
  Sender: FDA-Public Use
  Company Number: US-CELGENEUS-163-20785-11072820

PATIENT
  Sex: Male

DRUGS (8)
  1. DAPSONE [Concomitant]
     Dosage: 50 MILLIGRAM
     Route: 065
     Dates: start: 20080301
  2. THALOMID [Suspect]
     Indication: LEPROMATOUS LEPROSY
     Dosage: 200 MILLIGRAM
     Route: 048
     Dates: start: 20080901
  3. PREDNISONE [Concomitant]
     Dosage: 40 MILLIGRAM
     Route: 065
     Dates: start: 20110701
  4. RANITIDINE [Concomitant]
     Dosage: 150 MILLIGRAM
     Route: 048
     Dates: start: 20110201, end: 20110701
  5. THALOMID [Suspect]
     Dosage: 50-200MG
     Route: 048
     Dates: start: 20110301
  6. THALOMID [Suspect]
     Dosage: 50-200MG
     Route: 048
     Dates: start: 20090101
  7. THALOMID [Suspect]
     Dosage: 200 MILLIGRAM
     Route: 048
     Dates: start: 20091101
  8. MENOCIN [Concomitant]
     Dosage: 100 MILLIGRAM
     Route: 065
     Dates: start: 20080301

REACTIONS (1)
  - CHOLECYSTITIS [None]
